FAERS Safety Report 8094941 (Version 6)
Quarter: 2013Q2

REPORT INFORMATION
  Report Type: Spontaneous
  Country: US (occurrence: US)
  Receive Date: 20110817
  Receipt Date: 20130603
  Transmission Date: 20140414
  Serious: Yes (Other)
  Sender: FDA-Public Use
  Company Number: US-ASTRAZENECA-2011SE47493

PATIENT
  Age: 825 Month
  Sex: Female

DRUGS (2)
  1. NEXIUM [Suspect]
     Indication: GASTROOESOPHAGEAL REFLUX DISEASE
     Route: 048
  2. NEXIUM [Suspect]
     Indication: GASTROOESOPHAGEAL REFLUX DISEASE
     Route: 048

REACTIONS (5)
  - Neoplasm malignant [Unknown]
  - Pancreatic carcinoma metastatic [Unknown]
  - Appendix cancer [Unknown]
  - Adverse event [Unknown]
  - Intentional drug misuse [Unknown]
